FAERS Safety Report 25051743 (Version 1)
Quarter: 2025Q1

REPORT INFORMATION
  Report Type: Spontaneous
  Country: GB (occurrence: GB)
  Receive Date: 20250307
  Receipt Date: 20250307
  Transmission Date: 20250408
  Serious: Yes (Other)
  Sender: VIIV
  Company Number: GB-VIIV HEALTHCARE-GB2025EME025867

PATIENT

DRUGS (2)
  1. DOLUTEGRAVIR [Suspect]
     Active Substance: DOLUTEGRAVIR
     Indication: Product used for unknown indication
  2. LAMIVUDINE [Suspect]
     Active Substance: LAMIVUDINE
     Indication: Product used for unknown indication

REACTIONS (3)
  - Renal impairment [Unknown]
  - Virologic failure [Unknown]
  - Pathogen resistance [Unknown]
